FAERS Safety Report 10884907 (Version 1)
Quarter: 2015Q1

REPORT INFORMATION
  Report Type: Spontaneous
  Country: US (occurrence: None)
  Receive Date: 20150227
  Receipt Date: 20150227
  Transmission Date: 20150721
  Serious: Yes (Life-Threatening)
  Sender: FDA-Public Use
  Company Number: None

PATIENT
  Age: 55 Year
  Sex: Female
  Weight: 78.93 kg

DRUGS (5)
  1. HUMIRA [Suspect]
     Active Substance: ADALIMUMAB
     Dosage: 2 TIMES PER MONTH; INJECTED ABDOMEN; 1 INJECTION
  2. CLONOPIN [Concomitant]
     Active Substance: CLONAZEPAM
  3. MOTRIN OR TYLENOL [Concomitant]
  4. CYMBALTA [Concomitant]
     Active Substance: DULOXETINE HYDROCHLORIDE
  5. ALLERGY SPRAY [Concomitant]

REACTIONS (1)
  - Non-Hodgkin^s lymphoma [None]

NARRATIVE: CASE EVENT DATE: 20141205
